FAERS Safety Report 26084339 (Version 1)
Quarter: 2025Q4

REPORT INFORMATION
  Report Type: Spontaneous
  Country: US (occurrence: US)
  Receive Date: 20251124
  Receipt Date: 20251124
  Transmission Date: 20260118
  Serious: Yes (Disabling, Other)
  Sender: MERCK SHARP & DOHME LLC
  Company Number: US-009507513-2350718

PATIENT
  Sex: Male

DRUGS (2)
  1. KEYTRUDA [Suspect]
     Active Substance: PEMBROLIZUMAB
     Indication: Metastases to lung
     Route: 042
     Dates: start: 202509, end: 202511
  2. IRINOTECAN [Concomitant]
     Active Substance: IRINOTECAN

REACTIONS (17)
  - Cardiac ablation [Unknown]
  - Diarrhoea [Unknown]
  - Tenderness [Unknown]
  - Abdominal pain upper [Unknown]
  - Fatigue [Unknown]
  - Myalgia [Unknown]
  - Asthenia [Unknown]
  - Cough [Unknown]
  - Oedema peripheral [Unknown]
  - Mood altered [Unknown]
  - Gastrointestinal pain [Unknown]
  - Vertigo [Not Recovered/Not Resolved]
  - Ill-defined disorder [Unknown]
  - Tendonitis [Unknown]
  - Muscle spasms [Unknown]
  - Back pain [Unknown]
  - Increased tendency to bruise [Unknown]

NARRATIVE: CASE EVENT DATE: 20250101
